FAERS Safety Report 12257786 (Version 2)
Quarter: 2016Q2

REPORT INFORMATION
  Report Type: Report from Study
  Country: JP (occurrence: JP)
  Receive Date: 20160412
  Receipt Date: 20160613
  Transmission Date: 20160815
  Serious: Yes (Other)
  Sender: FDA-Public Use
  Company Number: JP-GILEAD-2016-0207427

PATIENT
  Age: 7 Month
  Sex: Male
  Weight: 6 kg

DRUGS (14)
  1. PRECEDEX [Concomitant]
     Active Substance: DEXMEDETOMIDINE HYDROCHLORIDE
     Dosage: UNK
     Dates: end: 20140626
  2. INOVAN INJECTION [Concomitant]
     Dosage: UNK
     Dates: end: 20140626
  3. MAGNESIUM OXIDE. [Concomitant]
     Active Substance: MAGNESIUM OXIDE
     Indication: CONSTIPATION PROPHYLAXIS
     Dosage: UNK
     Dates: start: 20140709
  4. DORMICUM [Concomitant]
     Active Substance: MIDAZOLAM\MIDAZOLAM HYDROCHLORIDE
     Dosage: UNK
  5. AMBRISENTAN [Suspect]
     Active Substance: AMBRISENTAN
     Indication: PULMONARY ARTERIAL HYPERTENSION
     Dosage: 0.25 MG, BID
     Route: 048
     Dates: start: 20140624, end: 20140821
  6. FUROSEMIDE. [Concomitant]
     Active Substance: FUROSEMIDE
     Dosage: UNK
     Dates: start: 20140627, end: 20140629
  7. FUROSEMIDE. [Concomitant]
     Active Substance: FUROSEMIDE
     Dosage: UNK
     Dates: start: 20140627
  8. ASPIRIN. [Concomitant]
     Active Substance: ASPIRIN
     Dosage: UNK
     Dates: start: 20140626
  9. MILRILA [Concomitant]
     Active Substance: MILRINONE
     Dosage: UNK
     Dates: end: 20140626
  10. INOVAN                             /00360702/ [Concomitant]
     Dosage: UNK
     Dates: end: 20140626
  11. DORMICUM                           /00634102/ [Concomitant]
     Dosage: UNK
  12. ALDACTONE A [Concomitant]
     Active Substance: SPIRONOLACTONE
     Dosage: UNK
     Dates: start: 20140627
  13. AMBRISENTAN [Suspect]
     Active Substance: AMBRISENTAN
     Dosage: 0.25 MG, QD
     Route: 048
     Dates: start: 20140822, end: 20140829
  14. ASPIRIN                            /00002701/ [Concomitant]
     Active Substance: ASPIRIN
     Dosage: UNK
     Dates: start: 20140626

REACTIONS (3)
  - Off label use [Recovered/Resolved]
  - Cardiac failure [Recovered/Resolved]
  - Pulmonary vascular disorder [Recovered/Resolved]

NARRATIVE: CASE EVENT DATE: 20140822
